FAERS Safety Report 20379305 (Version 1)
Quarter: 2022Q1

REPORT INFORMATION
  Report Type: Report from Study
  Country: ES (occurrence: ES)
  Receive Date: 20220126
  Receipt Date: 20220126
  Transmission Date: 20220423
  Serious: Yes (Disabling)
  Sender: FDA-Public Use
  Company Number: ES-JNJFOC-20190222444

PATIENT
  Age: 68 Year
  Sex: Male
  Weight: 88.5 kg

DRUGS (7)
  1. PLACEBO [Suspect]
     Active Substance: UNSPECIFIED INGREDIENT
     Indication: Prostate cancer
     Route: 048
     Dates: start: 20180219, end: 20190213
  2. OMEPRAZOLE [Concomitant]
     Active Substance: OMEPRAZOLE
     Indication: Gastrointestinal disorder therapy
     Route: 065
     Dates: start: 20190112
  3. GLUCOSAMINE [Concomitant]
     Active Substance: GLUCOSAMINE
     Route: 065
     Dates: start: 20190118
  4. ACECLOFENAC [Concomitant]
     Active Substance: ACECLOFENAC
     Route: 065
     Dates: start: 20190118
  5. CHONDROITIN SULFATE (BOVINE) [Concomitant]
     Active Substance: CHONDROITIN SULFATE (BOVINE)
     Route: 065
     Dates: start: 20190118
  6. IBUPROFEN [Concomitant]
     Active Substance: IBUPROFEN
     Indication: Urinary tract infection
     Route: 065
     Dates: start: 20180514
  7. LEUPROLIDE ACETATE [Concomitant]
     Active Substance: LEUPROLIDE ACETATE
     Route: 065
     Dates: start: 20180813

REACTIONS (1)
  - Arthralgia [Recovered/Resolved]

NARRATIVE: CASE EVENT DATE: 20190214
